FAERS Safety Report 24355153 (Version 2)
Quarter: 2024Q4

REPORT INFORMATION
  Report Type: Spontaneous
  Country: US (occurrence: US)
  Receive Date: 20240923
  Receipt Date: 20241107
  Transmission Date: 20250114
  Serious: No
  Sender: AMGEN
  Company Number: US-AMGEN-USASP2024187776

PATIENT
  Age: 26 Year
  Sex: Female

DRUGS (2)
  1. PREDNISONE [Suspect]
     Active Substance: PREDNISONE
     Indication: Thrombocytopenia
     Dosage: UNK
     Route: 065
  2. Immunoglobulin [Concomitant]
     Indication: Thrombocytopenia
     Dosage: UNK
     Route: 042

REACTIONS (2)
  - Maternal exposure during pregnancy [Unknown]
  - Platelet count decreased [Unknown]
